FAERS Safety Report 21614668 (Version 3)
Quarter: 2022Q4

REPORT INFORMATION
  Report Type: Spontaneous
  Country: US (occurrence: US)
  Receive Date: 20221118
  Receipt Date: 20221123
  Transmission Date: 20230113
  Serious: No
  Sender: FDA-Public Use
  Company Number: US-PFIZER INC-202201307775

PATIENT
  Age: 74 Year
  Sex: Female
  Weight: 68.04 kg

DRUGS (1)
  1. IBRANCE [Suspect]
     Active Substance: PALBOCICLIB
     Indication: Breast cancer metastatic
     Dosage: 100 MG, CYCLIC (21 DAYS THEN 7 DAYS OFF )
     Dates: start: 202012

REACTIONS (3)
  - Lacrimation increased [Not Recovered/Not Resolved]
  - Nasal congestion [Recovering/Resolving]
  - Hypersensitivity [Unknown]

NARRATIVE: CASE EVENT DATE: 20220701
